FAERS Safety Report 25963776 (Version 1)
Quarter: 2025Q4

REPORT INFORMATION
  Report Type: Spontaneous
  Country: US (occurrence: None)
  Receive Date: 20251027
  Receipt Date: 20251027
  Transmission Date: 20260118
  Serious: Yes (Hospitalization)
  Sender: FDA-CTU
  Company Number: None

PATIENT
  Age: 62 Year
  Sex: Female
  Weight: 77.11 kg

DRUGS (1)
  1. HUMIRA [Suspect]
     Active Substance: ADALIMUMAB
     Indication: Hidradenitis
     Dosage: INJECT 160MG (2 PENS) SUBCUTANEOUSLY ON DAY 1,  80MG (1PEN) ON DAY 15, THEN 40MG ONCE A WE
     Route: 058

REACTIONS (1)
  - Depression [None]

NARRATIVE: CASE EVENT DATE: 20251013
